FAERS Safety Report 9321959 (Version 2)
Quarter: 2013Q2

REPORT INFORMATION
  Report Type: Spontaneous
  Country: US (occurrence: US)
  Receive Date: 20130531
  Receipt Date: 20130619
  Transmission Date: 20140414
  Serious: Yes (Life-Threatening, Other)
  Sender: FDA-Public Use
  Company Number: US-009507513-1305USA015615

PATIENT
  Sex: Male

DRUGS (1)
  1. TEMODAR [Suspect]
     Indication: GLIOBLASTOMA
     Dosage: 200 MG/M2, QD FOR 5 DAYS PER MONTH
     Route: 048
     Dates: start: 201210

REACTIONS (3)
  - Glioblastoma [Not Recovered/Not Resolved]
  - Terminal state [Not Recovered/Not Resolved]
  - Drug ineffective [Unknown]
